FAERS Safety Report 8477610-8 (Version None)
Quarter: 2012Q2

REPORT INFORMATION
  Report Type: 
  Country: None (occurrence: None)
  Receive Date: 20120620
  Receipt Date: 20120606
  Transmission Date: 20120825
  Serious: Yes (Hospitalization)
  Sender: FDA-Public Use
  Company Number: ACO_30669_2012

PATIENT
  Age: 68 Year
  Sex: Female

DRUGS (9)
  1. KLONOPIN [Concomitant]
  2. AMPYRA [Suspect]
     Indication: PRODUCT USED FOR UNKNOWN INDICATION
     Dosage: 10 MG, BID
     Dates: start: 20111001
  3. LASIX [Concomitant]
  4. NEURONTIN [Concomitant]
  5. REQUIP [Concomitant]
  6. PRILOSEC [Concomitant]
  7. CYMBALTA [Concomitant]
  8. COUMADIN [Concomitant]
  9. ALENDRONATE SODIUM [Concomitant]

REACTIONS (2)
  - PNEUMONIA [None]
  - CHRONIC OBSTRUCTIVE PULMONARY DISEASE [None]
